FAERS Safety Report 6300945-1 (Version None)
Quarter: 2009Q3

REPORT INFORMATION
  Report Type: 
  Country: None (occurrence: None)
  Receive Date: 20090807
  Receipt Date: 20090728
  Transmission Date: 20100115
  Serious: Yes (Hospitalization)
  Sender: FDA-Public Use
  Company Number: HOAFF28609

PATIENT
  Age: 3 Year
  Sex: Male
  Weight: 14.9 kg

DRUGS (3)
  1. RISPERIDONE [Suspect]
     Indication: DRUG USE FOR UNKNOWN INDICATION
     Route: 048
  2. METHYLPHENIDATE HCL [Concomitant]
     Indication: PSYCHOMOTOR HYPERACTIVITY
  3. CLONIDINE [Concomitant]
     Indication: PSYCHOMOTOR HYPERACTIVITY

REACTIONS (10)
  - DISTURBANCE IN ATTENTION [None]
  - DRUG ADMINISTRATION ERROR [None]
  - DYSTONIA [None]
  - EXTRAPYRAMIDAL DISORDER [None]
  - GAZE PALSY [None]
  - INTENTIONAL OVERDOSE [None]
  - PYREXIA [None]
  - RESTLESSNESS [None]
  - SPEECH DISORDER [None]
  - TACHYCARDIA [None]
